FAERS Safety Report 14652469 (Version 1)
Quarter: 2018Q1

REPORT INFORMATION
  Report Type: Report from Study
  Country: None (occurrence: US)
  Receive Date: 20180318
  Receipt Date: 20180318
  Transmission Date: 20180509
  Serious: Yes (Hospitalization)
  Sender: FDA-Public Use
  Company Number: US-ABBVIE-18K-163-2278283-00

PATIENT
  Sex: Male
  Weight: 90.8 kg

DRUGS (4)
  1. ATORVASTATIN [Concomitant]
     Active Substance: ATORVASTATIN
     Indication: BLOOD CHOLESTEROL INCREASED
  2. RANEXA [Concomitant]
     Active Substance: RANOLAZINE
     Indication: PRODUCT USED FOR UNKNOWN INDICATION
  3. ZETIA [Concomitant]
     Active Substance: EZETIMIBE
     Indication: BLOOD CHOLESTEROL INCREASED
  4. HUMIRA [Suspect]
     Active Substance: ADALIMUMAB
     Indication: PSORIASIS
     Route: 058
     Dates: start: 2017

REACTIONS (7)
  - Influenza [Recovering/Resolving]
  - Pneumonia [Recovering/Resolving]
  - Bronchitis [Unknown]
  - Decreased appetite [Recovered/Resolved]
  - Skin exfoliation [Unknown]
  - Sensitivity to weather change [Unknown]
  - Sinusitis [Unknown]

NARRATIVE: CASE EVENT DATE: 201802
